FAERS Safety Report 6474257-X (Version None)
Quarter: 2009Q4

REPORT INFORMATION
  Report Type: 
  Country: None (occurrence: None)
  Receive Date: 20091204
  Receipt Date: 20091125
  Transmission Date: 20100525
  Serious: Yes (Other)
  Sender: FDA-Public Use
  Company Number: PHHY2009JP39732

PATIENT
  Sex: Male
  Weight: 55 kg

DRUGS (12)
  1. COMTAN CMT+TAB [Suspect]
     Indication: PARKINSON'S DISEASE
     Dosage: 300 MG DAILY
     Route: 048
     Dates: start: 20080426, end: 20080719
  2. CARBIDOPA AND LEVODOPA [Concomitant]
     Indication: PARKINSON'S DISEASE
     Dosage: 117 MG
     Route: 048
     Dates: start: 20080315
  3. SYMMETREL [Concomitant]
     Indication: PARKINSON'S DISEASE
     Dosage: 100 MG
     Route: 048
     Dates: start: 20070731
  4. SIFROL [Concomitant]
     Indication: PARKINSON'S DISEASE
     Dosage: 2 MG
     Route: 048
     Dates: start: 20070630
  5. SIFROL [Concomitant]
     Dosage: 1.5 MG
     Route: 048
  6. ASPIRIN [Concomitant]
     Dosage: 100 MG
     Route: 048
     Dates: start: 20041120
  7. PERSANTINE [Concomitant]
     Dosage: 75 MG
     Route: 048
     Dates: start: 20050406
  8. HALCION [Concomitant]
     Dosage: 0.25 MG
     Route: 048
     Dates: start: 20050406
  9. GASTROM [Concomitant]
     Dosage: 3 G
     Route: 048
     Dates: start: 20050406
  10. MICARDIS [Concomitant]
     Dosage: 80 G
     Route: 048
     Dates: start: 20061208
  11. FLUITRAN [Concomitant]
     Dosage: 2 G
     Route: 048
     Dates: start: 20061208
  12. EPERISONE HYDROCHLORIDE [Concomitant]
     Dosage: 100 MG
     Route: 048
     Dates: start: 20080118

REACTIONS (2)
  - CHROMATURIA [None]
  - HAEMATURIA [None]
